FAERS Safety Report 12086023 (Version 1)
Quarter: 2016Q1

REPORT INFORMATION
  Report Type: Spontaneous
  Country: PT (occurrence: PT)
  Receive Date: 20160217
  Receipt Date: 20160217
  Transmission Date: 20160526
  Serious: Yes (Other)
  Sender: FDA-Public Use
  Company Number: PT-BAXTER-2015BAX049182

PATIENT
  Age: 19 Year
  Sex: Male

DRUGS (6)
  1. PROPOFOL. [Suspect]
     Active Substance: PROPOFOL
     Indication: MAINTENANCE OF ANAESTHESIA
     Dosage: PERFUSION
     Route: 042
  2. DEXTROSE. [Concomitant]
     Active Substance: DEXTROSE
     Indication: PRODUCT USED FOR UNKNOWN INDICATION
     Route: 065
  3. INSULIN [Concomitant]
     Active Substance: INSULIN NOS
     Indication: PRODUCT USED FOR UNKNOWN INDICATION
     Route: 065
  4. REMIFENTANIL [Suspect]
     Active Substance: REMIFENTANIL
     Indication: GENERAL ANAESTHESIA
     Dosage: PERFUSION
     Route: 042
  5. SEVOFLURANO BAXTER 100% L?QUIDO PARA INALA??O POR VAPORIZA??O [Suspect]
     Active Substance: SEVOFLURANE
     Indication: MAINTENANCE OF ANAESTHESIA
     Route: 055
  6. PROPOFOL. [Suspect]
     Active Substance: PROPOFOL
     Indication: GENERAL ANAESTHESIA
     Route: 040

REACTIONS (7)
  - Hyperthermia [Recovering/Resolving]
  - Hypercapnia [Recovering/Resolving]
  - Hypoventilation [Recovering/Resolving]
  - Tachycardia [Recovering/Resolving]
  - Procedural complication [Recovering/Resolving]
  - Musculoskeletal stiffness [Recovering/Resolving]
  - Oedema peripheral [Recovering/Resolving]
